FAERS Safety Report 9224549 (Version 1)
Quarter: 2013Q2

REPORT INFORMATION
  Report Type: Spontaneous
  Country: US (occurrence: None)
  Receive Date: 20130411
  Receipt Date: 20130411
  Transmission Date: 20140414
  Serious: Yes (Hospitalization)
  Sender: FDA-Public Use
  Company Number: None

PATIENT
  Age: 45 Year
  Sex: Female
  Weight: 170.7 kg

DRUGS (13)
  1. COUMADIN (COUMADIN) [Suspect]
     Indication: DEEP VEIN THROMBOSIS
     Dosage: 7.5 MG  QMIDNIGHT  PO?CHRONIC
     Route: 048
  2. KEFLEX [Suspect]
     Indication: SOFT TISSUE INFECTION
     Dosage: 500MG  BID  PO?RECENT
     Route: 048
  3. VEPESID [Concomitant]
  4. NEURONTIN [Concomitant]
  5. LORAZEPAM [Concomitant]
  6. MS CONTIN [Concomitant]
  7. PROTONIX [Concomitant]
  8. DEXAMETHASONE [Concomitant]
  9. FOSAPEPITANT [Concomitant]
  10. OMNIPAQUE [Concomitant]
  11. ZOFRAN [Concomitant]
  12. DILAUDID [Concomitant]
  13. ROX [Concomitant]

REACTIONS (2)
  - International normalised ratio increased [None]
  - Drug interaction [None]
